FAERS Safety Report 15562804 (Version 3)
Quarter: 2019Q4

REPORT INFORMATION
  Report Type: Spontaneous
  Country: US (occurrence: US)
  Receive Date: 20181029
  Receipt Date: 20191126
  Transmission Date: 20200122
  Serious: Yes (Hospitalization)
  Sender: FDA-Public Use
  Company Number: US-SA-2018SA297880

PATIENT
  Age: 69 Year
  Sex: Female

DRUGS (5)
  1. METOPROLOL. [Concomitant]
     Active Substance: METOPROLOL
  2. ASPIRIN [ACETYLSALICYLIC ACID] [Concomitant]
     Active Substance: ASPIRIN
     Dosage: UNK
  3. NIACIN. [Concomitant]
     Active Substance: NIACIN
  4. PRALUENT [Suspect]
     Active Substance: ALIROCUMAB
     Indication: TYPE IIA HYPERLIPIDAEMIA
     Dosage: 75 MG, QOW
     Route: 058
     Dates: start: 20171129
  5. ASPIRIN [ACETYLSALICYLIC ACID] [Concomitant]
     Active Substance: ASPIRIN
     Dosage: 324 MG, QD

REACTIONS (5)
  - Low density lipoprotein increased [Unknown]
  - Dyspnoea [Unknown]
  - Viral infection [Unknown]
  - Paraesthesia oral [Unknown]
  - Diplopia [Unknown]

NARRATIVE: CASE EVENT DATE: 20181022
